FAERS Safety Report 6072036-9 (Version None)
Quarter: 2009Q1

REPORT INFORMATION
  Report Type: 
  Country: None (occurrence: None)
  Receive Date: 20090205
  Receipt Date: 20090126
  Transmission Date: 20090719
  Serious: Yes (Other)
  Sender: FDA-Public Use
  Company Number: 2009SP001888

PATIENT
  Sex: Male

DRUGS (4)
  1. CORICIDIN [Suspect]
     Dosage: Q6H; PO
     Route: 048
     Dates: start: 20090113, end: 20090114
  2. ABILIFY [Suspect]
  3. LAMICTAL [Suspect]
  4. KLONOPIN [Concomitant]

REACTIONS (1)
  - SUICIDAL IDEATION [None]
